FAERS Safety Report 10391528 (Version 8)
Quarter: 2023Q2

REPORT INFORMATION
  Report Type: Report from Study
  Country: JP (occurrence: JP)
  Receive Date: 20140818
  Receipt Date: 20230525
  Transmission Date: 20230721
  Serious: Yes (Other)
  Sender: FDA-Public Use
  Company Number: JP-JT-EVA201210738GILEAD-001

PATIENT
  Age: 42 Year
  Sex: Male

DRUGS (3)
  1. EMTRICITABINE\TENOFOVIR DISOPROXIL FUMARATE [Suspect]
     Active Substance: EMTRICITABINE\TENOFOVIR DISOPROXIL FUMARATE
     Indication: HIV infection
     Dosage: 1 DOSAGE FORM, QD
     Route: 048
     Dates: start: 20110223, end: 20170418
  2. ISENTRESS [Suspect]
     Active Substance: RALTEGRAVIR POTASSIUM
     Indication: HIV infection
     Dosage: 800 MG, QD
     Route: 048
     Dates: start: 20110223, end: 20140618
  3. TIVICAY [Concomitant]
     Active Substance: DOLUTEGRAVIR SODIUM
     Indication: HIV infection
     Dosage: 50 MG, QD
     Route: 048
     Dates: start: 20140619

REACTIONS (4)
  - Osteoporosis [Not Recovered/Not Resolved]
  - Blood cholinesterase increased [Not Recovered/Not Resolved]
  - Alcoholic liver disease [Not Recovered/Not Resolved]
  - Blood triglycerides increased [Recovered/Resolved]

NARRATIVE: CASE EVENT DATE: 20110330
